FAERS Safety Report 5874502-5 (Version None)
Quarter: 2008Q3

REPORT INFORMATION
  Report Type: 
  Country: None (occurrence: None)
  Receive Date: 20080909
  Receipt Date: 20080828
  Transmission Date: 20090109
  Serious: Yes (Other)
  Sender: FDA-Public Use
  Company Number: PHHY2008DE13488

PATIENT
  Age: 60 Year
  Sex: Female

DRUGS (3)
  1. ESTRADERM [Suspect]
     Indication: HORMONE REPLACEMENT THERAPY
     Dosage: 2 PATCHES/WEEK
     Route: 062
  2. LEVOTHYROXINE SODIUM [Concomitant]
  3. VITAMIN TAB [Concomitant]

REACTIONS (3)
  - MACULAR DEGENERATION [None]
  - PAIN IN EXTREMITY [None]
  - VISION BLURRED [None]
